FAERS Safety Report 22270343 (Version 1)
Quarter: 2023Q2

REPORT INFORMATION
  Report Type: Spontaneous
  Country: US (occurrence: None)
  Receive Date: 20230428
  Receipt Date: 20230428
  Transmission Date: 20230722
  Serious: Yes (Other)
  Sender: FDA-Public Use
  Company Number: None

PATIENT
  Age: 46 Year
  Sex: Female

DRUGS (1)
  1. DUPIXENT [Suspect]
     Active Substance: DUPILUMAB
     Dosage: OTHER QUANTITY : 300MG/2ML;?OTHER FREQUENCY : Q 2 WEEKS;?
     Route: 058

REACTIONS (3)
  - Hypersensitivity [None]
  - Musculoskeletal discomfort [None]
  - Back disorder [None]
